FAERS Safety Report 19142149 (Version 9)
Quarter: 2021Q3

REPORT INFORMATION
  Report Type: Report from Study
  Country: US (occurrence: US)
  Receive Date: 20210416
  Receipt Date: 20210915
  Transmission Date: 20211014
  Serious: Yes (Other)
  Sender: FDA-Public Use
  Company Number: US-B.I. PHARMACEUTICALS,INC./RIDGEFIELD-2021-BI-096594

PATIENT
  Age: 75 Year
  Sex: Male

DRUGS (5)
  1. ALBUTEROL [SALBUTAMOL] [Concomitant]
     Active Substance: ALBUTEROL
     Indication: PRODUCT USED FOR UNKNOWN INDICATION
  2. OFEV [Suspect]
     Active Substance: NINTEDANIB
     Indication: IDIOPATHIC PULMONARY FIBROSIS
     Dosage: 150MG TWICE DAILY
     Route: 048
     Dates: start: 201502
  3. COUMADIN [Concomitant]
     Active Substance: WARFARIN SODIUM
     Indication: DEEP VEIN THROMBOSIS
     Dates: start: 2006
  4. OXYBUTYNIN. [Concomitant]
     Active Substance: OXYBUTYNIN CHLORIDE
     Indication: PRODUCT USED FOR UNKNOWN INDICATION
  5. WARFARIN [Concomitant]
     Active Substance: WARFARIN
     Indication: PRODUCT USED FOR UNKNOWN INDICATION

REACTIONS (40)
  - Diarrhoea [Not Recovered/Not Resolved]
  - COVID-19 [Not Recovered/Not Resolved]
  - Fall [Recovered/Resolved]
  - Dyspnoea [Not Recovered/Not Resolved]
  - Decreased appetite [Recovered/Resolved]
  - COVID-19 [Recovered/Resolved]
  - Rhinorrhoea [Not Recovered/Not Resolved]
  - Red blood cell abnormality [Unknown]
  - Ageusia [Not Recovered/Not Resolved]
  - Limb injury [Recovered/Resolved]
  - Weight decreased [Not Recovered/Not Resolved]
  - Anxiety [Not Recovered/Not Resolved]
  - Wound infection [Recovered/Resolved]
  - Nasal crusting [Not Recovered/Not Resolved]
  - Rales [Unknown]
  - Wound [Recovered/Resolved]
  - Haemoglobin increased [Recovered/Resolved]
  - Dyspnoea [Not Recovered/Not Resolved]
  - Contusion [Not Recovered/Not Resolved]
  - Cough [Recovered/Resolved]
  - Amnesia [Not Recovered/Not Resolved]
  - Red blood cell count increased [Recovered/Resolved]
  - Dyspnoea [Unknown]
  - Pulmonary mass [Not Recovered/Not Resolved]
  - Anosmia [Not Recovered/Not Resolved]
  - Oxygen saturation decreased [Not Recovered/Not Resolved]
  - Idiopathic pulmonary fibrosis [Unknown]
  - Oxygen saturation increased [Not Recovered/Not Resolved]
  - Weight decreased [Not Recovered/Not Resolved]
  - Hyperventilation [Not Recovered/Not Resolved]
  - Weight decreased [Recovered/Resolved]
  - Haemoglobin increased [Unknown]
  - Temperature intolerance [Not Recovered/Not Resolved]
  - Atrial fibrillation [Recovered/Resolved]
  - Impaired healing [Not Recovered/Not Resolved]
  - Lung disorder [Unknown]
  - Secretion discharge [Recovered/Resolved]
  - Weight decreased [Recovered/Resolved]
  - Erythema [Recovering/Resolving]
  - Productive cough [Unknown]

NARRATIVE: CASE EVENT DATE: 2017
